FAERS Safety Report 12767274 (Version 1)
Quarter: 2016Q3

REPORT INFORMATION
  Report Type: Spontaneous
  Country: US (occurrence: US)
  Receive Date: 20160916
  Receipt Date: 20160916
  Transmission Date: 20161109
  Serious: No
  Sender: FDA-Public Use
  Company Number: None

PATIENT
  Sex: Male

DRUGS (1)
  1. CAPECITABINE 500 MG TEVA [Suspect]
     Active Substance: CAPECITABINE
     Indication: NEOPLASM OF APPENDIX
     Dosage: 2000 MG TWICE A DAY FOR 14 DAYS PO
     Route: 048
     Dates: start: 20160405

REACTIONS (4)
  - Peripheral swelling [None]
  - Rash erythematous [None]
  - Skin discolouration [None]
  - Neuropathy peripheral [None]
